FAERS Safety Report 4818419-3 (Version None)
Quarter: 2005Q4

REPORT INFORMATION
  Report Type: 
  Country: None (occurrence: None)
  Receive Date: 20051031
  Receipt Date: 20051019
  Transmission Date: 20060501
  Serious: Yes (Hospitalization)
  Sender: FDA-Public Use
  Company Number: TPA2005A01046

PATIENT
  Age: 60 Year
  Sex: Male
  Weight: 100.6985 kg

DRUGS (25)
  1. ACTOS [Suspect]
     Indication: DIABETES MELLITUS NON-INSULIN-DEPENDENT
     Dosage: 45 MG, 1 IN 1 D, PER ORAL
     Route: 048
     Dates: start: 20020101, end: 20050908
  2. GLYBURIDE (GLIBENCLAMIDE) (10 MILLIGRAM) [Concomitant]
  3. METFORMIN (METFORMIN) (1000 MILLIGRAM) [Concomitant]
  4. ANTIBIOTICS (ANTIBIOTICS) [Concomitant]
  5. HUMALOG [Concomitant]
  6. NOVOLIN N [Concomitant]
  7. NOVOLIN 85/15 [Concomitant]
  8. PRILOSEC (OMEPRAZOLE) (20 MILLIGRAM) [Concomitant]
  9. GEMFIBROZIL [Concomitant]
  10. LIPITOR [Concomitant]
  11. PLAVIX [Concomitant]
  12. PROMETHAZINE (PROMETHAZINE) (25 MILLIGRAM, TABLETS) [Concomitant]
  13. HYDROMORPHONE HCL [Concomitant]
  14. AZITHROMYCIN (AZITHROMYCIN) (250 MILLIGRAM) [Concomitant]
  15. SIMVASTATIN (SIMVASTATIN) (40 MILLIGRAM) [Concomitant]
  16. VITAMIN B12 [Concomitant]
  17. VITAMIN C (ASCORBIC ACID) [Concomitant]
  18. CALCIUM (CALCIUM) [Concomitant]
  19. MAGNESIUM (MAGNESIUM) [Concomitant]
  20. ZINC (ZINC) [Concomitant]
  21. UNKNOWN MEDICATION FOR INCREASED ENERGY (ALL OTHER THERAPEUTIC PRODUCT [Concomitant]
  22. CIPRO (CIPROFLOXACIN) (400 MILLIGRAM) [Concomitant]
  23. FLAGYL (METRONIDAZOLE BENZOATE) (750 MILLIGRAM) [Concomitant]
  24. ROCEPHIN [Concomitant]
  25. PROTONIX (PANTOPRAZOLE) (40 MILLIGRAM, TABLETS) [Concomitant]

REACTIONS (32)
  - AGITATION [None]
  - ARTHRALGIA [None]
  - ASTHENIA [None]
  - ATELECTASIS [None]
  - BRONCHITIS [None]
  - CARDIOMEGALY [None]
  - DECREASED APPETITE [None]
  - DIABETES MELLITUS INADEQUATE CONTROL [None]
  - DIVERTICULUM [None]
  - DYSURIA [None]
  - EXOSTOSIS [None]
  - FACIAL PALSY [None]
  - FATIGUE [None]
  - HEADACHE [None]
  - HEPATIC INFECTION [None]
  - HEPATIC STEATOSIS [None]
  - HEPATITIS [None]
  - HYPOAESTHESIA [None]
  - HYPOXIA [None]
  - IRRITABILITY [None]
  - KIDNEY INFECTION [None]
  - MEMORY IMPAIRMENT [None]
  - MUSCLE SPASMS [None]
  - MYALGIA [None]
  - OSTEOARTHRITIS [None]
  - PAIN [None]
  - PANCREAS INFECTION [None]
  - PANCREATITIS [None]
  - PNEUMONIA [None]
  - RENAL CYST [None]
  - TOE DEFORMITY [None]
  - WEIGHT DECREASED [None]
